FAERS Safety Report 12753951 (Version 1)
Quarter: 2016Q3

REPORT INFORMATION
  Report Type: Other
  Country: US (occurrence: US)
  Receive Date: 20160916
  Receipt Date: 20160916
  Transmission Date: 20161109
  Serious: Yes (Hospitalization, Other)
  Sender: FDA-Public Use
  Company Number: US-LUPIN PHARMACEUTICALS INC.-2016-04163

PATIENT
  Age: 16 Year
  Sex: Female

DRUGS (1)
  1. AMLODIPINE [Suspect]
     Active Substance: AMLODIPINE BESYLATE
     Indication: PRODUCT USED FOR UNKNOWN INDICATION
     Dosage: HANDFUL
     Route: 065

REACTIONS (4)
  - Overdose [Unknown]
  - Cardiogenic shock [Recovered/Resolved]
  - Acute kidney injury [Recovered/Resolved]
  - Coma scale abnormal [Recovered/Resolved]
